FAERS Safety Report 25418616 (Version 4)
Quarter: 2025Q4

REPORT INFORMATION
  Report Type: Report from Study
  Country: ZA (occurrence: ZA)
  Receive Date: 20250610
  Receipt Date: 20251003
  Transmission Date: 20260117
  Serious: Yes (Other)
  Sender: NOVARTIS
  Company Number: ZA-002147023-NVSC2025ZA091825

PATIENT
  Age: 69 Year
  Sex: Male

DRUGS (2)
  1. INCLISIRAN [Suspect]
     Active Substance: INCLISIRAN
     Indication: Hyperlipidaemia
     Dosage: 284 MG, OTHER (ONE INJECTION AT MONTH 0, MONTH 3 AND MONTH 6, WITH 6-MONTHLY MAINTENANCE DOSE)
     Route: 058
     Dates: start: 20240611
  2. INCLISIRAN [Suspect]
     Active Substance: INCLISIRAN
     Indication: Hypercholesterolaemia
     Dosage: 284 MG, OTHER (ONE INJECTION AT MONTH 0, MONTH 3 AND MONTH 6, WITH 6-MONTHLY MAINTENANCE DOSE)
     Route: 058
     Dates: start: 20250606

REACTIONS (6)
  - Urinary tract infection [Not Recovered/Not Resolved]
  - Drug ineffective [Unknown]
  - Rash [Unknown]
  - Prostatic specific antigen increased [Unknown]
  - Renal pain [Unknown]
  - Prostatic disorder [Unknown]

NARRATIVE: CASE EVENT DATE: 20240611
